FAERS Safety Report 5045498-3 (Version None)
Quarter: 2006Q3

REPORT INFORMATION
  Report Type: 
  Country: None (occurrence: None)
  Receive Date: 20060707
  Receipt Date: 20060628
  Transmission Date: 20061208
  Serious: Yes (Other)
  Sender: FDA-Public Use
  Company Number: AU-JNJFOC-20060606736

PATIENT
  Age: 20 Year
  Sex: Female

DRUGS (2)
  1. RISPERDAL [Suspect]
     Indication: DRUG USE FOR UNKNOWN INDICATION
     Route: 048
  2. OLANZAPINE [Concomitant]

REACTIONS (3)
  - HODGKIN'S DISEASE NODULAR SCLEROSIS STAGE III [None]
  - NEUTROPENIA [None]
  - NO THERAPEUTIC RESPONSE [None]
